FAERS Safety Report 25888537 (Version 4)
Quarter: 2025Q4

REPORT INFORMATION
  Report Type: Spontaneous
  Country: JP (occurrence: JP)
  Receive Date: 20251007
  Receipt Date: 20251223
  Transmission Date: 20260119
  Serious: Yes (Other)
  Sender: ALEXION PHARMACEUTICALS
  Company Number: JP-ASTRAZENECA-202510JPN001791JP

PATIENT
  Age: 6 Decade
  Sex: Male

DRUGS (3)
  1. ULTOMIRIS [Suspect]
     Active Substance: RAVULIZUMAB-CWVZ
     Indication: Paroxysmal nocturnal haemoglobinuria
     Dosage: UNK
     Route: 065
  2. VOYDEYA [Suspect]
     Active Substance: DANICOPAN
     Indication: Paroxysmal nocturnal haemoglobinuria
     Dosage: 450 MILLIGRAM, QD
     Route: 065
  3. VOYDEYA [Suspect]
     Active Substance: DANICOPAN
     Dosage: 600 MILLIGRAM, QD
     Route: 065

REACTIONS (4)
  - Extravascular haemolysis [Unknown]
  - Blood bilirubin increased [Unknown]
  - Reticulocyte count decreased [Unknown]
  - Platelet count decreased [Unknown]
